FAERS Safety Report 9925712 (Version 3)
Quarter: 2014Q2

REPORT INFORMATION
  Report Type: Report from Study
  Country: JP (occurrence: JP)
  Receive Date: 20140226
  Receipt Date: 20140512
  Transmission Date: 20141212
  Serious: Yes (Hospitalization)
  Sender: FDA-Public Use
  Company Number: JP-GLAXOSMITHKLINE-B0972021A

PATIENT
  Age: 77 Year
  Sex: Male
  Weight: 54 kg

DRUGS (12)
  1. REVOLADE [Suspect]
     Indication: IMMUNE THROMBOCYTOPENIC PURPURA
     Route: 048
     Dates: start: 20121206, end: 20130115
  2. REVOLADE [Suspect]
     Indication: IMMUNE THROMBOCYTOPENIC PURPURA
     Route: 048
     Dates: start: 20131112, end: 201401
  3. REVOLADE [Suspect]
     Indication: IMMUNE THROMBOCYTOPENIC PURPURA
     Dosage: 25MG PER DAY
     Route: 048
     Dates: start: 201401
  4. PREDONINE [Concomitant]
     Indication: IMMUNE THROMBOCYTOPENIC PURPURA
     Route: 048
  5. THYRADIN S [Concomitant]
     Route: 048
  6. LIVALO [Concomitant]
     Route: 048
  7. HARNAL [Concomitant]
     Route: 048
  8. BETANIS [Concomitant]
     Route: 048
     Dates: start: 20130119
  9. BETANIS [Concomitant]
     Route: 048
     Dates: start: 20131217
  10. ALLELOCK [Concomitant]
     Route: 048
     Dates: start: 20130422
  11. ATARAX-P [Concomitant]
     Route: 048
     Dates: start: 20130422, end: 20130716
  12. FLOMOX [Concomitant]
     Route: 048
     Dates: start: 20131128, end: 20131201

REACTIONS (1)
  - Myocardial infarction [Unknown]
